FAERS Safety Report 5938066-X (Version None)
Quarter: 2008Q4

REPORT INFORMATION
  Report Type: 
  Country: None (occurrence: None)
  Receive Date: 20081031
  Receipt Date: 20081023
  Transmission Date: 20090506
  Serious: Yes (Hospitalization)
  Sender: FDA-Public Use
  Company Number: PHHY2008JP23583

PATIENT
  Sex: Male
  Weight: 64 kg

DRUGS (6)
  1. ZOMETA [Suspect]
     Indication: METASTASES TO BONE
     Dosage: 4 MG (SINGLE DOSE)
     Route: 042
     Dates: start: 20080929, end: 20080929
  2. FENTANYL CITRATE [Concomitant]
     Indication: TUMOUR PAIN
     Dosage: 2.5 MG, UNK
     Route: 061
     Dates: start: 20080905
  3. FENTANYL CITRATE [Concomitant]
     Dosage: 5 MG, UNK
     Route: 061
  4. FENTANYL CITRATE [Concomitant]
     Dosage: 5 MG, UNK
     Route: 061
  5. CHEMOTHERAPEUTICS NOS [Concomitant]
     Indication: PROSTATE CANCER
  6. DOCETAXEL [Suspect]
     Dosage: 84.5 MG, UNK
     Dates: start: 20081015

REACTIONS (5)
  - BLOOD AMYLASE INCREASED [None]
  - BLOOD LACTATE DEHYDROGENASE INCREASED [None]
  - GAIT DISTURBANCE [None]
  - PAIN IN EXTREMITY [None]
  - PYREXIA [None]
